FAERS Safety Report 4729873-X (Version None)
Quarter: 2005Q3

REPORT INFORMATION
  Report Type: 
  Country: None (occurrence: None)
  Receive Date: 20050728
  Receipt Date: 20050719
  Transmission Date: 20060218
  Serious: Yes (Other)
  Sender: FDA-Public Use
  Company Number: TUK2005A00051

PATIENT
  Sex: Male

DRUGS (6)
  1. ACTOS [Suspect]
     Indication: DIABETES MELLITUS NON-INSULIN-DEPENDENT
     Dosage: 45 MG; 30 MG
     Route: 048
     Dates: start: 20050201, end: 20050501
  2. ACTOS [Suspect]
     Indication: DIABETES MELLITUS NON-INSULIN-DEPENDENT
     Dosage: 45 MG; 30 MG
     Route: 048
     Dates: start: 20050501, end: 20050601
  3. ATORVASTATIN CALCIUM [Concomitant]
  4. METFORMIN HCL [Concomitant]
  5. GLICLAZIDE [Concomitant]
  6. ASPIRIN [Concomitant]

REACTIONS (2)
  - CONDITION AGGRAVATED [None]
  - MYOSITIS [None]
